FAERS Safety Report 9580838 (Version 1)
Quarter: 2013Q4

REPORT INFORMATION
  Report Type: Spontaneous
  Country: US (occurrence: None)
  Receive Date: 20131001
  Receipt Date: 20131001
  Transmission Date: 20140711
  Serious: Yes (Disabling)
  Sender: FDA-Public Use
  Company Number: None

PATIENT
  Age: 85 Year
  Sex: Female
  Weight: 49.9 kg

DRUGS (11)
  1. FORTICAL [Suspect]
     Indication: OSTEOPOROSIS
     Dosage: ONE SPRAY TO ALTERNATELY NOSTRILS EVERY DAY ALTERNATE NOSTRILS EVERYDAY USE ONE SPRAY
     Route: 045
     Dates: start: 201305, end: 201307
  2. UNSPECIFIED INGREDIENT [Concomitant]
  3. PREVICID 15 MG [Concomitant]
  4. FISH OIL [Concomitant]
  5. COLLAGEN [Concomitant]
  6. VIT C [Concomitant]
  7. MAGNESIUM [Concomitant]
  8. VIT D [Concomitant]
  9. ENZYMES [Concomitant]
  10. CALCIUM [Concomitant]
  11. MIACALCIN [Suspect]

REACTIONS (2)
  - Eye infection [None]
  - Drug ineffective [None]
